FAERS Safety Report 5259316-1 (Version None)
Quarter: 2007Q1

REPORT INFORMATION
  Report Type: 
  Country: None (occurrence: None)
  Receive Date: 20070308
  Receipt Date: 20070305
  Transmission Date: 20070707
  Serious: Yes (Death)
  Sender: FDA-Public Use
  Company Number: KR-GILEAD-2007-0011452

PATIENT
  Age: 52 Year
  Sex: Female

DRUGS (5)
  1. ADEFOVIR DIPIVOXIL [Suspect]
     Indication: HEPATITIS B
     Route: 048
     Dates: start: 20060220
  2. LAMIVUDINE [Concomitant]
     Dates: start: 20050516, end: 20060306
  3. CEFOXITIN SODIUM [Concomitant]
     Dates: start: 20060117, end: 20060120
  4. URSODIOL [Concomitant]
     Dates: start: 20050501, end: 20060306
  5. SILYMARIN [Concomitant]
     Dates: start: 20050501, end: 20060306

REACTIONS (2)
  - ASCITES [None]
  - HEPATIC FAILURE [None]
